FAERS Safety Report 7812972 (Version 8)
Quarter: 2013Q4

REPORT INFORMATION
  Report Type: Report from Study
  Country: DE (occurrence: DE)
  Receive Date: 20110215
  Receipt Date: 20131202
  Transmission Date: 20140711
  Serious: Yes (Death, Other)
  Sender: FDA-Public Use
  Company Number: DE-CELGENEUS-062-C5013-11021182

PATIENT
  Age: 70 Year
  Sex: Female

DRUGS (8)
  1. CC-5013 [Suspect]
     Indication: PLASMA CELL MYELOMA
     Dosage: 10 MILLIGRAM
     Route: 048
     Dates: start: 200706, end: 200802
  2. CC-5013 [Suspect]
     Dosage: 25 MILLIGRAM
     Route: 048
     Dates: start: 200803, end: 200804
  3. CC-5013 [Suspect]
     Dosage: 25 MILLIGRAM
     Route: 048
     Dates: start: 200807, end: 20080908
  4. MELPHALAN [Suspect]
     Indication: PLASMA CELL MYELOMA
     Dosage: .18 MILLIGRAM/KILOGRAM
     Route: 065
     Dates: start: 200706, end: 200802
  5. MELPHALAN [Suspect]
     Route: 065
     Dates: start: 200803, end: 20080704
  6. PREDNISONE [Suspect]
     Indication: PLASMA CELL MYELOMA
     Dosage: 2 MILLIGRAM/KILOGRAM
     Route: 065
     Dates: start: 200706, end: 200802
  7. PREDNISONE [Suspect]
     Route: 065
     Dates: start: 200803, end: 20080704
  8. RED BLOOD CELLS [Concomitant]
     Indication: PRODUCT USED FOR UNKNOWN INDICATION
     Route: 041
     Dates: start: 20070628, end: 20100401

REACTIONS (2)
  - Acute myeloid leukaemia [Not Recovered/Not Resolved]
  - Plasma cell myeloma [Fatal]
